FAERS Safety Report 25764394 (Version 1)
Quarter: 2025Q3

REPORT INFORMATION
  Report Type: Spontaneous
  Country: US (occurrence: US)
  Receive Date: 20250905
  Receipt Date: 20250905
  Transmission Date: 20251021
  Serious: No
  Sender: DOMPE FARMACEUTICI
  Company Number: US-FARMAPROD-202502-0430

PATIENT
  Sex: Female
  Weight: 42.64 kg

DRUGS (17)
  1. OXERVATE [Suspect]
     Active Substance: CENEGERMIN-BKBJ
     Indication: Ulcerative keratitis
     Route: 047
     Dates: start: 20250116
  2. MOXIFLOXACIN [Concomitant]
     Active Substance: MOXIFLOXACIN
  3. LISINOPRIL [Concomitant]
     Active Substance: LISINOPRIL
  4. DEXAMETHASONE SODIUM PHOSPHATE [Concomitant]
     Active Substance: DEXAMETHASONE SODIUM PHOSPHATE
  5. ATORVASTATIN CALCIUM [Concomitant]
     Active Substance: ATORVASTATIN CALCIUM
  6. CALCIUM [Concomitant]
     Active Substance: CALCIUM
  7. VITAMINS [Concomitant]
     Active Substance: VITAMINS
  8. ASPIRIN [Concomitant]
     Active Substance: ASPIRIN
  9. ATROPINE SULFATE [Concomitant]
     Active Substance: ATROPINE SULFATE
  10. ATENOLOL [Concomitant]
     Active Substance: ATENOLOL
  11. VITAMIN C [Concomitant]
     Active Substance: ASCORBIC ACID
  12. ASPIRIN [Concomitant]
     Active Substance: ASPIRIN
  13. LISINOPRIL [Concomitant]
     Active Substance: LISINOPRIL
  14. LIPITOR [Concomitant]
     Active Substance: ATORVASTATIN CALCIUM
  15. ATENOLOL [Concomitant]
     Active Substance: ATENOLOL
  16. DEXAMETHASONE [Concomitant]
     Active Substance: DEXAMETHASONE
  17. UNSPECIFIED INGREDIENT [Concomitant]
     Active Substance: UNSPECIFIED INGREDIENT

REACTIONS (3)
  - Eye pain [Unknown]
  - Facial pain [Unknown]
  - Headache [Unknown]
